FAERS Safety Report 22098716 (Version 6)
Quarter: 2025Q2

REPORT INFORMATION
  Report Type: Report from Study
  Country: JP (occurrence: JP)
  Receive Date: 20230315
  Receipt Date: 20250630
  Transmission Date: 20250716
  Serious: Yes (Hospitalization, Other)
  Sender: ASTELLAS
  Company Number: JP-ASTELLAS-2022JP005617

PATIENT
  Age: 72 Year
  Sex: Female
  Weight: 54 kg

DRUGS (28)
  1. PADCEV [Suspect]
     Active Substance: ENFORTUMAB VEDOTIN-EJFV
     Indication: Ureteric cancer metastatic
     Route: 042
     Dates: start: 20220315, end: 20220315
  2. PADCEV [Suspect]
     Active Substance: ENFORTUMAB VEDOTIN-EJFV
     Route: 042
     Dates: start: 20220510, end: 20220621
  3. PADCEV [Suspect]
     Active Substance: ENFORTUMAB VEDOTIN-EJFV
     Route: 042
     Dates: start: 20220719, end: 20220802
  4. PADCEV [Suspect]
     Active Substance: ENFORTUMAB VEDOTIN-EJFV
     Route: 042
     Dates: start: 20220830, end: 20220906
  5. PADCEV [Suspect]
     Active Substance: ENFORTUMAB VEDOTIN-EJFV
     Route: 042
     Dates: start: 20220927, end: 20221004
  6. PADCEV [Suspect]
     Active Substance: ENFORTUMAB VEDOTIN-EJFV
     Route: 042
     Dates: start: 20221025, end: 20221101
  7. PADCEV [Suspect]
     Active Substance: ENFORTUMAB VEDOTIN-EJFV
     Route: 042
     Dates: start: 20221213, end: 20221220
  8. PADCEV [Suspect]
     Active Substance: ENFORTUMAB VEDOTIN-EJFV
     Route: 042
     Dates: start: 20230117, end: 20230124
  9. PADCEV [Suspect]
     Active Substance: ENFORTUMAB VEDOTIN-EJFV
     Route: 042
     Dates: start: 20230214, end: 20230214
  10. KEYTRUDA [Suspect]
     Active Substance: PEMBROLIZUMAB
     Indication: Ureteric cancer metastatic
     Route: 065
     Dates: start: 20180518, end: 20210413
  11. LINAGLIPTIN [Concomitant]
     Active Substance: LINAGLIPTIN
     Indication: Product used for unknown indication
     Route: 048
     Dates: start: 20210430
  12. VONOPRAZAN FUMARATE [Concomitant]
     Active Substance: VONOPRAZAN FUMARATE
     Indication: Product used for unknown indication
     Route: 048
     Dates: start: 20220203, end: 20220809
  13. ALFAROL [Concomitant]
     Active Substance: ALFACALCIDOL
     Indication: Product used for unknown indication
     Route: 048
     Dates: start: 20220203
  14. SAMTIREL Oral Suspension [Concomitant]
     Indication: Product used for unknown indication
     Route: 048
     Dates: start: 20220203
  15. URSODIOL [Concomitant]
     Active Substance: URSODIOL
     Indication: Product used for unknown indication
     Route: 048
     Dates: start: 20220203
  16. PREDNISOLONE [Concomitant]
     Active Substance: PREDNISOLONE
     Indication: Product used for unknown indication
     Route: 048
     Dates: start: 20220303, end: 20220509
  17. PREDNISOLONE [Concomitant]
     Active Substance: PREDNISOLONE
     Route: 048
     Dates: start: 20220510, end: 20220606
  18. PREDNISOLONE [Concomitant]
     Active Substance: PREDNISOLONE
     Route: 048
     Dates: start: 20220607, end: 20220704
  19. PREDNISOLONE [Concomitant]
     Active Substance: PREDNISOLONE
     Route: 048
     Dates: start: 20220705, end: 20220801
  20. Hirudoid Lotion 0.3? [Concomitant]
     Indication: Prophylaxis
     Route: 061
     Dates: start: 20220315
  21. BEPOTASTINE BESILATE OD Tablet 10mg [Concomitant]
     Indication: Drug eruption
     Route: 048
     Dates: start: 20220322, end: 20220426
  22. BETAMETHASONE BUTYRATE PROPIONATE [Concomitant]
     Active Substance: BETAMETHASONE BUTYRATE PROPIONATE
     Indication: Drug eruption
     Route: 061
     Dates: start: 20220322, end: 20220418
  23. RINDERON-V Ointment 0.12? [Concomitant]
     Indication: Drug eruption
     Route: 061
     Dates: start: 20220322, end: 20220329
  24. LOCOID OINTMENT 0.1? [Concomitant]
     Indication: Drug eruption
     Route: 061
     Dates: start: 20220329, end: 20220418
  25. PREGABALIN OD Tablet 75mg [Concomitant]
     Indication: Neuropathy peripheral
     Route: 048
     Dates: start: 20220411
  26. HUMULIN R [Concomitant]
     Active Substance: INSULIN HUMAN
     Indication: Glucose tolerance impaired
     Dosage: DOSE ACCORDING TO CHANGE ORDER IN BLOOD GLUCOSE, THRICE DAILY
     Route: 065
     Dates: start: 20220412, end: 20220417
  27. Cymbalta tablet 20 mg [Concomitant]
     Indication: Neuropathy peripheral
     Route: 048
     Dates: start: 20220413
  28. FAMOTIDINE [Concomitant]
     Active Substance: FAMOTIDINE
     Indication: Product used for unknown indication
     Route: 048
     Dates: start: 20220927

REACTIONS (10)
  - Glucose tolerance impaired [Recovered/Resolved]
  - Neuropathy peripheral [Recovered/Resolved]
  - Drug eruption [Recovering/Resolving]
  - Liver function test increased [Recovered/Resolved]
  - Alopecia [Unknown]
  - Decreased appetite [Recovering/Resolving]
  - Decreased appetite [Recovered/Resolved]
  - Decreased appetite [Recovered/Resolved]
  - Decreased appetite [Recovered/Resolved]
  - Decreased appetite [Unknown]

NARRATIVE: CASE EVENT DATE: 20220101
